FAERS Safety Report 25341029 (Version 2)
Quarter: 2025Q2

REPORT INFORMATION
  Report Type: Spontaneous
  Country: US (occurrence: US)
  Receive Date: 20250521
  Receipt Date: 20250611
  Transmission Date: 20250716
  Serious: Yes (Hospitalization)
  Sender: ARGENX BVBA
  Company Number: US-ARGENX-2025-ARGX-US006465

PATIENT

DRUGS (1)
  1. VYVGART [Suspect]
     Active Substance: EFGARTIGIMOD ALFA-FCAB
     Indication: Myasthenia gravis
     Route: 042
     Dates: start: 202412

REACTIONS (5)
  - Condition aggravated [Recovering/Resolving]
  - Diplopia [Recovering/Resolving]
  - Arthropod bite [Recovering/Resolving]
  - Anxiety [Unknown]
  - Fatigue [Recovering/Resolving]
